FAERS Safety Report 23155933 (Version 1)
Quarter: 2023Q4

REPORT INFORMATION
  Report Type: Spontaneous
  Country: JP (occurrence: JP)
  Receive Date: 20231107
  Receipt Date: 20231107
  Transmission Date: 20240109
  Serious: No
  Sender: FDA-Public Use
  Company Number: JP-SCALL-2023-017599

PATIENT
  Age: 16 Year
  Sex: Male

DRUGS (5)
  1. DUTASTERIDE [Suspect]
     Active Substance: DUTASTERIDE
     Indication: Androgenetic alopecia
     Dosage: 0.5 MG, QD
     Route: 065
     Dates: start: 20230204
  2. adapalene + benzoyl peroxide (Epiduo) [Concomitant]
  3. doxycycline (Vibramycin) [Concomitant]
  4. Saireitou [Concomitant]
  5. Seijobofuto (Chinese herbal medicine) [Concomitant]
     Indication: Acne

REACTIONS (1)
  - Product use issue [Unknown]
